FAERS Safety Report 16661881 (Version 1)
Quarter: 2019Q3

REPORT INFORMATION
  Report Type: Spontaneous
  Country: US (occurrence: US)
  Receive Date: 20190802
  Receipt Date: 20190802
  Transmission Date: 20191004
  Serious: Yes (Other)
  Sender: FDA-Public Use
  Company Number: US-GALDERMA-US19046618

PATIENT
  Age: 41 Year
  Sex: Male

DRUGS (5)
  1. TRIMETHOPRIM SULFAMETHOXAZOLE BACTRIM [Concomitant]
     Indication: SWELLING FACE
  2. DOXYCYCLINE (DOXYCYCLINE) CAPSULES, 40 MG [Suspect]
     Active Substance: DOXYCYCLINE
     Indication: LIP SWELLING
     Dosage: 40 MG
     Route: 048
  3. DOXYCYCLINE (DOXYCYCLINE) CAPSULES, 40 MG [Suspect]
     Active Substance: DOXYCYCLINE
     Indication: SWELLING FACE
  4. FLECAINIDE [Concomitant]
     Active Substance: FLECAINIDE
     Indication: ATRIAL FIBRILLATION
     Route: 065
  5. TRIMETHOPRIM SULFAMETHOXAZOLE BACTRIM [Concomitant]
     Indication: LIP SWELLING
     Route: 065

REACTIONS (7)
  - Intentional product use issue [Recovered/Resolved]
  - Myelodysplastic syndrome [Recovered/Resolved]
  - Anaemia [Recovered/Resolved]
  - Leukopenia [Recovered/Resolved]
  - Agranulocytosis [Recovered/Resolved]
  - Neutropenia [Recovered/Resolved]
  - Oral candidiasis [Unknown]
